FAERS Safety Report 23436890 (Version 3)
Quarter: 2025Q3

REPORT INFORMATION
  Report Type: Spontaneous
  Country: CA (occurrence: CA)
  Receive Date: 20240124
  Receipt Date: 20250930
  Transmission Date: 20251020
  Serious: Yes (Other)
  Sender: ASTELLAS
  Company Number: CA-ASTELLAS-2024US002033

PATIENT
  Age: 45 Year
  Sex: Male

DRUGS (5)
  1. TACROLIMUS [Suspect]
     Active Substance: TACROLIMUS
     Indication: Immunosuppressant drug therapy
     Dosage: 3 MG (2 EVERY 1 DAYS)?ON D +5, +6, +7
     Route: 065
  2. TACROLIMUS [Suspect]
     Active Substance: TACROLIMUS
     Indication: Immunosuppressant drug therapy
     Dosage: 4 MG (2 EVERY 1 DAYS); ON DAY +8, DAY +9, DAY 10
     Route: 065
  3. NIRMATRELVIR [Interacting]
     Active Substance: NIRMATRELVIR
     Indication: COVID-19
     Dosage: 1 DF, EVERY OTHER DAY (2 EVERY 1 DAYS)
     Route: 048
  4. RITONAVIR [Interacting]
     Active Substance: RITONAVIR
     Indication: COVID-19
     Dosage: 1 DF, EVERY OTHER DAY (2 EVERY 1 DAYS)
     Route: 048
  5. MYCOPHENOLATE SODIUM [Concomitant]
     Active Substance: MYCOPHENOLATE SODIUM
     Indication: Immunosuppressant drug therapy
     Dosage: 360 MG, EVERY OTHER DAY (2 EVERY 1 DAYS)
     Route: 065

REACTIONS (3)
  - Drug level above therapeutic [Recovered/Resolved]
  - Nephropathy toxic [Recovered/Resolved]
  - Drug interaction [Recovered/Resolved]
